FAERS Safety Report 5557949-6 (Version None)
Quarter: 2007Q4

REPORT INFORMATION
  Report Type: 
  Country: None (occurrence: None)
  Receive Date: 20071214
  Receipt Date: 20071205
  Transmission Date: 20080405
  Serious: Yes (Hospitalization)
  Sender: FDA-Public Use
  Company Number: IE-ROCHE-535251

PATIENT
  Age: 33 Year
  Sex: Male

DRUGS (1)
  1. ISOTRETINOIN [Suspect]
     Indication: ACNE
     Route: 065

REACTIONS (5)
  - AGITATION [None]
  - ANXIETY [None]
  - BLOOD BILIRUBIN INCREASED [None]
  - DEPRESSED MOOD [None]
  - SUICIDAL IDEATION [None]
